FAERS Safety Report 7203928-2 (Version None)
Quarter: 2010Q4

REPORT INFORMATION
  Report Type: 
  Country: None (occurrence: None)
  Receive Date: 20101230
  Receipt Date: 20101214
  Transmission Date: 20110411
  Serious: No
  Sender: FDA-Public Use
  Company Number: US-PFIZER INC-2010172741

PATIENT
  Sex: Female
  Weight: 53.061 kg

DRUGS (5)
  1. XALATAN [Suspect]
     Indication: GLAUCOMA
     Dosage: 2 GTT, 1X/DAY
     Route: 047
     Dates: start: 20101004
  2. CARBOXYMETHYLCELLULOSE SODIUM [Concomitant]
     Indication: DRY EYE
     Dosage: UNK
  3. LISINOPRIL [Concomitant]
     Indication: PROPHYLAXIS
     Dosage: 2.5 MG, 1X/DAY
  4. SIMVASTATIN [Concomitant]
     Indication: BLOOD CHOLESTEROL
     Dosage: FREQUENCY: EVERY OTHER DAY,
  5. CYCLOSPORINE [Concomitant]
     Indication: DRY EYE
     Dosage: UNK

REACTIONS (1)
  - EYE PAIN [None]
